FAERS Safety Report 13738683 (Version 1)
Quarter: 2017Q3

REPORT INFORMATION
  Report Type: Report from Study
  Country: US (occurrence: US)
  Receive Date: 20170710
  Receipt Date: 20170710
  Transmission Date: 20171127
  Serious: No
  Sender: FDA-Public Use
  Company Number: US-SAOL THERAPEUTICS-2016SAO00859

PATIENT
  Age: 33 Year
  Sex: Female

DRUGS (2)
  1. LIORESAL [Suspect]
     Active Substance: BACLOFEN
     Dosage: 175.69 ?G, \DAY
     Dates: start: 20161003
  2. LIORESAL [Suspect]
     Active Substance: BACLOFEN
     Dosage: 144.55 ?G, \DAY
     Route: 037
     Dates: start: 20160602, end: 20161003

REACTIONS (3)
  - Device failure [Unknown]
  - Muscular weakness [Recovered/Resolved]
  - Intervertebral disc protrusion [Recovered/Resolved]

NARRATIVE: CASE EVENT DATE: 20161003
